FAERS Safety Report 4778549-1 (Version None)
Quarter: 2005Q3

REPORT INFORMATION
  Report Type: 
  Country: None (occurrence: None)
  Receive Date: 20050926
  Receipt Date: 20050609
  Transmission Date: 20060218
  Serious: Yes (Hospitalization, Other)
  Sender: FDA-Public Use
  Company Number: US-MERCK-0506USA01868

PATIENT
  Age: 72 Year
  Sex: Male
  Weight: 118 kg

DRUGS (30)
  1. VIOXX [Suspect]
     Route: 048
     Dates: start: 20020101, end: 20040402
  2. ZESTRIL [Concomitant]
     Route: 065
     Dates: start: 19920901, end: 19930401
  3. ZESTRIL [Concomitant]
     Route: 065
     Dates: start: 19920901, end: 19930401
  4. LOPRESSOR [Concomitant]
     Indication: BLOOD PRESSURE
     Route: 065
     Dates: start: 19940901
  5. LOPRESSOR [Concomitant]
     Route: 065
     Dates: start: 19940901
  6. TOPROL-XL [Concomitant]
     Indication: BLOOD PRESSURE
     Route: 048
     Dates: start: 19971201
  7. PROCARDIA [Concomitant]
     Route: 065
     Dates: start: 19971201
  8. PROCARDIA [Concomitant]
     Route: 065
     Dates: start: 19971201
  9. CARDIZEM [Concomitant]
     Route: 065
     Dates: start: 19930428
  10. CARDIZEM [Concomitant]
     Route: 065
     Dates: start: 19930428
  11. VERAPAMIL MSD LP [Concomitant]
     Indication: BLOOD PRESSURE
     Route: 048
     Dates: start: 19910101
  12. LIPITOR [Concomitant]
     Indication: BLOOD CHOLESTEROL INCREASED
     Route: 065
  13. SYNTHROID [Concomitant]
     Indication: THYROID DISORDER
     Route: 048
  14. OXYCODONE HYDROCHLORIDE [Concomitant]
     Indication: BACK PAIN
     Route: 048
  15. COLACE [Concomitant]
     Route: 048
  16. COLACE [Concomitant]
     Route: 048
  17. CELEXA [Concomitant]
     Route: 048
  18. CELEXA [Concomitant]
     Route: 048
  19. PREVACID [Concomitant]
     Route: 048
  20. PREVACID [Concomitant]
     Route: 048
  21. FLOMAX (MORNIFLUMATE) [Concomitant]
     Route: 065
  22. FLOMAX (MORNIFLUMATE) [Concomitant]
     Route: 065
  23. PLAVIX [Concomitant]
     Route: 048
  24. PLAVIX [Concomitant]
     Route: 048
  25. ASPIRIN [Concomitant]
     Route: 048
  26. ASPIRIN [Concomitant]
     Route: 048
  27. NITROGLYCERIN [Concomitant]
     Route: 061
  28. NITROGLYCERIN [Concomitant]
     Route: 061
  29. TYLENOL (CAPLET) [Concomitant]
     Route: 048
  30. TYLENOL (CAPLET) [Concomitant]
     Route: 048

REACTIONS (11)
  - AMAUROSIS FUGAX [None]
  - ANAEMIA POSTOPERATIVE [None]
  - ANGINA PECTORIS [None]
  - CARDIAC DISORDER [None]
  - HYPONATRAEMIA [None]
  - POST-TRAUMATIC STRESS DISORDER [None]
  - PROCEDURAL HYPOTENSION [None]
  - SPINAL OSTEOARTHRITIS [None]
  - STAPHYLOCOCCAL INFECTION [None]
  - STENT PLACEMENT [None]
  - THROMBOSIS [None]
